FAERS Safety Report 7942123-6 (Version None)
Quarter: 2011Q4

REPORT INFORMATION
  Report Type: 
  Country: None (occurrence: None)
  Receive Date: 20111128
  Receipt Date: 20111118
  Transmission Date: 20120403
  Serious: Yes (Other)
  Sender: FDA-Public Use
  Company Number: DE-UCBSA-045622

PATIENT
  Age: 40 Year
  Sex: Male
  Weight: 87 kg

DRUGS (18)
  1. CIMZIA [Suspect]
     Route: 058
     Dates: start: 20110106, end: 20110210
  2. BUDESONIDE [Concomitant]
     Indication: COLITIS
     Dosage: 1 KE, AS NEEDED
     Dates: start: 20110217, end: 20110630
  3. PREDNISONE [Concomitant]
     Indication: RHEUMATOID ARTHRITIS
     Route: 048
     Dates: start: 20091229
  4. ENTOCORT EC [Concomitant]
     Indication: COLITIS ULCERATIVE
     Route: 054
     Dates: start: 20110206
  5. PANTOPRAZOLE SODIUM [Concomitant]
     Indication: GASTRITIS PROPHYLAXIS
     Route: 048
     Dates: start: 20110103
  6. PREDNISOLONE [Concomitant]
     Indication: RHEUMATOID ARTHRITIS
     Route: 048
     Dates: start: 20110328
  7. PREDNISOLONE [Concomitant]
     Route: 048
     Dates: start: 20101108, end: 20110328
  8. CAVIT D [Concomitant]
     Indication: PROPHYLAXIS
     Dosage: SINGLE DOSE/ DAILY DOSE: 1000MG/880 IE
     Route: 048
     Dates: start: 20100906
  9. KOHLE-TABLETTEN [Concomitant]
     Indication: COLITIS
     Dosage: 1 TABLET AS NECESSARY
     Dates: start: 20110223
  10. HAMATOPHAN [Concomitant]
     Indication: IRON DEFICIENCY ANAEMIA
     Route: 048
     Dates: start: 20101215
  11. COLIFOAM [Concomitant]
     Indication: COLITIS
     Dosage: 1 TABLET TWICE A DAY
     Dates: start: 20110203, end: 20110714
  12. CIMZIA [Suspect]
     Indication: RHEUMATOID ARTHRITIS
     Route: 058
     Dates: start: 20110217, end: 20110519
  13. CAVIT D [Concomitant]
     Indication: OSTEOPOROSIS
     Dosage: SINGLE DOSE/ DAILY DOSE: 1000MG/880 IE
     Route: 048
     Dates: start: 20100906
  14. CYCLOSPORINE [Concomitant]
     Indication: RHEUMATOID ARTHRITIS
     Dates: start: 20110217, end: 20110327
  15. ERGOCALCIFEROL [Concomitant]
     Indication: OSTEOPOROSIS PROPHYLAXIS
     Dates: start: 20070306
  16. SANDIMMUN OPT [Concomitant]
     Indication: SPONDYLITIS
     Route: 048
     Dates: start: 20110217, end: 20110328
  17. SANDIMMUN OPT [Concomitant]
     Route: 048
     Dates: start: 20110329
  18. EPOMAX [Concomitant]
     Indication: COLITIS
     Dates: start: 20110204

REACTIONS (1)
  - COLITIS ULCERATIVE [None]
